FAERS Safety Report 11615118 (Version 1)
Quarter: 2015Q4

REPORT INFORMATION
  Report Type: Spontaneous
  Country: US (occurrence: None)
  Receive Date: 20151008
  Receipt Date: 20151008
  Transmission Date: 20160304
  Serious: No
  Sender: FDA-Public Use
  Company Number: None

PATIENT
  Age: 60 Year
  Sex: Female
  Weight: 90.72 kg

DRUGS (7)
  1. MEGARED [Concomitant]
  2. LIALDA [Suspect]
     Active Substance: MESALAMINE
     Indication: COLITIS ULCERATIVE
     Route: 048
     Dates: start: 20150716, end: 20150815
  3. CALCIUM SUPPLEMENT [Concomitant]
     Active Substance: CALCIUM
  4. PROBIOTICS [Concomitant]
     Active Substance: PROBIOTICS NOS
  5. ZOLPIDEM [Concomitant]
     Active Substance: ZOLPIDEM\ZOLPIDEM TARTRATE
  6. BUDESNONIDE EC [Concomitant]
  7. VITAMIN D [Concomitant]
     Active Substance: CHOLECALCIFEROL

REACTIONS (4)
  - Nausea [None]
  - Malaise [None]
  - Influenza like illness [None]
  - Hepatic function abnormal [None]

NARRATIVE: CASE EVENT DATE: 20150815
